FAERS Safety Report 20608441 (Version 8)
Quarter: 2022Q3

REPORT INFORMATION
  Report Type: Report from Study
  Country: US (occurrence: US)
  Receive Date: 20220317
  Receipt Date: 20220704
  Transmission Date: 20221026
  Serious: Yes (Other)
  Sender: FDA-Public Use
  Company Number: US-GLAXOSMITHKLINE-US2021AMR248087

PATIENT

DRUGS (1)
  1. BELANTAMAB MAFODOTIN [Suspect]
     Active Substance: BELANTAMAB MAFODOTIN
     Indication: Product used for unknown indication
     Dosage: UNK
     Dates: start: 20211109, end: 20211223

REACTIONS (9)
  - Punctate keratitis [Unknown]
  - Visual acuity reduced [Not Recovered/Not Resolved]
  - Corneal epithelium defect [Unknown]
  - Keratopathy [Unknown]
  - Corneal epithelial microcysts [Unknown]
  - Photophobia [Not Recovered/Not Resolved]
  - Dry eye [Not Recovered/Not Resolved]
  - Night blindness [Not Recovered/Not Resolved]
  - Ocular toxicity [Unknown]

NARRATIVE: CASE EVENT DATE: 20211130
